FAERS Safety Report 14516141 (Version 2)
Quarter: 2018Q1

REPORT INFORMATION
  Report Type: Spontaneous
  Country: IT (occurrence: IT)
  Receive Date: 20180211
  Receipt Date: 20180321
  Transmission Date: 20180509
  Serious: Yes (Life-Threatening, Other)
  Sender: FDA-Public Use
  Company Number: IT-SHIRE-IT201737346

PATIENT

DRUGS (4)
  1. VINCRISTINA PFIZER ITALIA 1MG/ML SOLUZIONE INIETTABILE PER USO ENDOVEN [Concomitant]
     Indication: PRECURSOR B-LYMPHOBLASTIC LYMPHOMA
     Route: 042
     Dates: start: 20170727, end: 20170810
  2. PREDNISONE. [Concomitant]
     Active Substance: PREDNISONE
     Indication: PRECURSOR B-LYMPHOBLASTIC LYMPHOMA
     Route: 048
     Dates: start: 20170720, end: 20170811
  3. DAUNOBLASTINA 20 MG/10 ML POLVERE E SOLVENTE PER SOLUZIONE INIETTABILE [Concomitant]
     Indication: PRECURSOR B-LYMPHOBLASTIC LYMPHOMA
     Route: 042
     Dates: start: 20170727, end: 20170810
  4. ONCASPAR [Suspect]
     Active Substance: PEGASPARGASE
     Indication: PRECURSOR B-LYMPHOBLASTIC LYMPHOMA
     Dosage: IN TOTAL
     Route: 042
     Dates: start: 20170731, end: 20170731

REACTIONS (5)
  - Abdominal pain [Recovering/Resolving]
  - Lipase increased [Recovering/Resolving]
  - Hypotension [Recovering/Resolving]
  - Pancreatitis acute [Recovering/Resolving]
  - Amylase increased [Recovering/Resolving]

NARRATIVE: CASE EVENT DATE: 20170816
